FAERS Safety Report 6631208-2 (Version None)
Quarter: 2010Q1

REPORT INFORMATION
  Report Type: 
  Country: None (occurrence: None)
  Receive Date: 20100312
  Receipt Date: 20100304
  Transmission Date: 20100710
  Serious: Yes (Hospitalization)
  Sender: FDA-Public Use
  Company Number: FR-SP-2010-01064

PATIENT
  Sex: Male
  Weight: 59 kg

DRUGS (1)
  1. IMMUCYST [Suspect]
     Indication: BLADDER CANCER
     Route: 043
     Dates: start: 20100111, end: 20100111

REACTIONS (11)
  - BONE MARROW GRANULOMA [None]
  - CELL DEATH [None]
  - CHILLS [None]
  - CHOLESTASIS [None]
  - DISSEMINATED TUBERCULOSIS [None]
  - FATIGUE [None]
  - GRANULOMATOUS LIVER DISEASE [None]
  - HEPATOSPLENOMEGALY [None]
  - HYPERHIDROSIS [None]
  - LEUKOPENIA [None]
  - PYREXIA [None]
